FAERS Safety Report 15738539 (Version 1)
Quarter: 2018Q4

REPORT INFORMATION
  Report Type: Spontaneous
  Country: US (occurrence: US)
  Receive Date: 20181219
  Receipt Date: 20181219
  Transmission Date: 20190205
  Serious: No
  Sender: FDA-Public Use
  Company Number: US-PFIZER INC-2018514183

PATIENT
  Age: 83 Year
  Sex: Female
  Weight: 83.46 kg

DRUGS (1)
  1. IBRANCE [Suspect]
     Active Substance: PALBOCICLIB
     Indication: BREAST CANCER FEMALE
     Dosage: 125 MG, CYCLIC (ONCE DAILY, FOR 3 WEEKS THEN OFF A WEEK)
     Route: 048
     Dates: start: 2018

REACTIONS (1)
  - Hypoacusis [Not Recovered/Not Resolved]
